FAERS Safety Report 4571752-5 (Version None)
Quarter: 2005Q1

REPORT INFORMATION
  Report Type: 
  Country: None (occurrence: None)
  Receive Date: 20050207
  Receipt Date: 20041202
  Transmission Date: 20050727
  Serious: Yes (Hospitalization, Disabling)
  Sender: FDA-Public Use
  Company Number: US-MERCK-0412USA00446

PATIENT
  Age: 66 Year
  Sex: Female

DRUGS (4)
  1. ZOCOR [Suspect]
     Indication: HYPERCHOLESTEROLAEMIA
     Route: 048
     Dates: start: 20040101, end: 20040128
  2. CLOZAPINE [Suspect]
     Indication: SCHIZOAFFECTIVE DISORDER
     Route: 048
     Dates: start: 20041111, end: 20041125
  3. CLOZAPINE [Suspect]
     Route: 065
  4. SYNTHROID [Concomitant]
     Route: 065

REACTIONS (7)
  - CONFUSIONAL STATE [None]
  - DIARRHOEA [None]
  - FEELING ABNORMAL [None]
  - MALAISE [None]
  - MUSCULAR WEAKNESS [None]
  - PYREXIA [None]
  - TACHYCARDIA [None]
